FAERS Safety Report 16030456 (Version 2)
Quarter: 2019Q1

REPORT INFORMATION
  Report Type: Spontaneous
  Country: US (occurrence: US)
  Receive Date: 20190304
  Receipt Date: 20190322
  Transmission Date: 20190418
  Serious: No
  Sender: FDA-Public Use
  Company Number: US-EX USA HOLDINGS-EXHL20190077

PATIENT
  Sex: Female

DRUGS (2)
  1. SYEDA [Suspect]
     Active Substance: DROSPIRENONE\ETHINYL ESTRADIOL
     Indication: HORMONE SUPPRESSION THERAPY
     Dosage: UNKNOWN
     Route: 048
  2. ESTARYLLA [Suspect]
     Active Substance: ETHINYL ESTRADIOL\NORGESTIMATE
     Indication: HORMONE SUPPRESSION THERAPY
     Dosage: TAPERED DOSE: 3 TABS/DAY X 3 DAYS, 2 TABS/DAY X 2 DAYS, 1 TAB/DAY UNTIL ACTIVE PILLS COMPLETED
     Route: 048

REACTIONS (3)
  - Metrorrhagia [Unknown]
  - Inappropriate schedule of product administration [None]
  - Off label use [None]
